FAERS Safety Report 7390367-7 (Version None)
Quarter: 2011Q2

REPORT INFORMATION
  Report Type: 
  Country: None (occurrence: None)
  Receive Date: 20110401
  Receipt Date: 20110322
  Transmission Date: 20111010
  Serious: Yes (Hospitalization)
  Sender: FDA-Public Use
  Company Number: JP-AMGEN-JPNCT2010001078

PATIENT
  Age: 55 Year
  Sex: Male
  Weight: 57 kg

DRUGS (8)
  1. IRINOTECAN HYDROCHLORIDE [Concomitant]
     Dosage: 230 MG, Q2WK
     Route: 041
     Dates: end: 20110126
  2. IRINOTECAN HYDROCHLORIDE [Concomitant]
     Indication: COLORECTAL CANCER
     Dosage: 230 MG, Q2WK
     Route: 041
     Dates: start: 20100813, end: 20110126
  3. FLUOROURACIL [Concomitant]
     Indication: COLORECTAL CANCER
     Dosage: 3000 MG, Q2WK
     Route: 041
     Dates: start: 20100813, end: 20110126
  4. CALCIUM LEVOFOLINATE [Concomitant]
     Indication: COLORECTAL CANCER
     Dosage: 300 MG, Q2WK
     Route: 041
     Dates: start: 20100813, end: 20110126
  5. ANTIHISTAMINES [Concomitant]
     Indication: PROPHYLAXIS
     Dosage: UNK
     Route: 065
  6. CORTICOSTEROIDS [Concomitant]
     Indication: PROPHYLAXIS
     Dosage: UNK
     Route: 065
  7. PANITUMUMAB [Suspect]
     Indication: COLORECTAL CANCER
     Dosage: 6 MG/KG, Q2WK
     Route: 041
     Dates: start: 20100813, end: 20110126
  8. FLUOROURACIL [Concomitant]
     Dosage: 3000 MG, Q2WK
     Route: 041
     Dates: end: 20110126

REACTIONS (4)
  - PARONYCHIA [None]
  - ILEUS [None]
  - RASH [None]
  - CHEILITIS [None]
